FAERS Safety Report 7936347-1 (Version None)
Quarter: 2011Q4

REPORT INFORMATION
  Report Type: 
  Country: None (occurrence: None)
  Receive Date: 20111123
  Receipt Date: 20111115
  Transmission Date: 20120403
  Serious: Yes (Hospitalization)
  Sender: FDA-Public Use
  Company Number: US-UCBSA-044580

PATIENT
  Age: 64 Year
  Sex: Male
  Weight: 123.37 kg

DRUGS (7)
  1. PROTOMIX [Concomitant]
     Route: 048
  2. ONGLYZA [Concomitant]
  3. CIMZIA [Suspect]
     Indication: CROHN'S DISEASE
     Dosage: 400 MG
     Route: 058
     Dates: start: 20111027, end: 20110101
  4. TRICOR [Concomitant]
     Route: 048
  5. LASIX [Concomitant]
     Route: 048
  6. METOPROLOL TARTRATE [Concomitant]
     Route: 048
  7. DOXAZOSIN MESYLATE [Concomitant]

REACTIONS (1)
  - DRUG HYPERSENSITIVITY [None]
